FAERS Safety Report 11329789 (Version 1)
Quarter: 2015Q3

REPORT INFORMATION
  Report Type: Spontaneous
  Country: US (occurrence: None)
  Receive Date: 20150730
  Receipt Date: 20150730
  Transmission Date: 20151125
  Serious: No
  Sender: FDA-Public Use
  Company Number: None

PATIENT
  Age: 33 Year
  Sex: Male

DRUGS (10)
  1. BUPROPION. [Concomitant]
     Active Substance: BUPROPION
  2. DOFETILIDE [Concomitant]
     Active Substance: DOFETILIDE
  3. FUROSEMIDE. [Concomitant]
     Active Substance: FUROSEMIDE
  4. MAGNESIUM [Concomitant]
     Active Substance: MAGNESIUM
  5. FERROUS SULFATE [Concomitant]
     Active Substance: FERROUS SULFATE\FERROUS SULFATE, DRIED
  6. HEPARIN [Concomitant]
     Active Substance: HEPARIN SODIUM
  7. WARFARIN [Concomitant]
     Active Substance: WARFARIN
  8. HYDROMORPHONE [Suspect]
     Active Substance: HYDROMORPHONE
     Indication: PAIN
     Route: 048
     Dates: start: 20150213, end: 20150216
  9. BENZONATATE. [Concomitant]
     Active Substance: BENZONATATE
  10. EPLERENONE. [Concomitant]
     Active Substance: EPLERENONE

REACTIONS (2)
  - Somnolence [None]
  - Oxygen saturation decreased [None]

NARRATIVE: CASE EVENT DATE: 20150216
